FAERS Safety Report 11751764 (Version 1)
Quarter: 2015Q4

REPORT INFORMATION
  Report Type: Spontaneous
  Country: US (occurrence: US)
  Receive Date: 20151118
  Receipt Date: 20151118
  Transmission Date: 20160304
  Serious: No
  Sender: FDA-Public Use
  Company Number: US-GALDERMA-US15001292

PATIENT
  Age: 77 Year
  Sex: Female

DRUGS (5)
  1. METROGEL [Concomitant]
     Active Substance: METRONIDAZOLE
     Route: 061
     Dates: start: 201408
  2. EUCERIN MOISTURIZER [Concomitant]
     Indication: DRY SKIN
     Route: 061
  3. METROCREAM [Suspect]
     Active Substance: METRONIDAZOLE
     Indication: ROSACEA
     Dosage: 0.75%
     Route: 061
     Dates: end: 2014
  4. METROGEL [Concomitant]
     Active Substance: METRONIDAZOLE
     Indication: ROSACEA
     Route: 061
     Dates: start: 201501
  5. UNKNOWN BAR SOAP [Concomitant]
     Indication: THERAPEUTIC SKIN CARE TOPICAL
     Route: 061

REACTIONS (1)
  - Dry skin [Recovered/Resolved]
